FAERS Safety Report 13115117 (Version 5)
Quarter: 2018Q2

REPORT INFORMATION
  Report Type: Report from Study
  Country: FR (occurrence: FR)
  Receive Date: 20170113
  Receipt Date: 20180514
  Transmission Date: 20180711
  Serious: Yes (Death, Other)
  Sender: FDA-Public Use
  Company Number: FR-CELGENEUS-FRA-2016128617

PATIENT

DRUGS (2)
  1. REVLIMID [Suspect]
     Active Substance: LENALIDOMIDE
     Indication: DIFFUSE LARGE B-CELL LYMPHOMA
     Dosage: 25 MILLIGRAM
     Route: 048
  2. REVLIMID [Suspect]
     Active Substance: LENALIDOMIDE
     Route: 048

REACTIONS (27)
  - Haematological malignancy [Unknown]
  - Skin reaction [Unknown]
  - Cardiovascular insufficiency [Fatal]
  - Myocardial infarction [Fatal]
  - Multiple organ dysfunction syndrome [Fatal]
  - Infection [Unknown]
  - Cardiac disorder [Unknown]
  - Sepsis [Fatal]
  - Venous thrombosis [Unknown]
  - Neoplasm [Unknown]
  - Liver disorder [Unknown]
  - Metastatic neoplasm [Fatal]
  - Diarrhoea [Unknown]
  - Unevaluable event [Fatal]
  - Pneumonia [Fatal]
  - Respiratory tract infection [Fatal]
  - Death [Fatal]
  - Septic shock [Fatal]
  - Lung neoplasm malignant [Fatal]
  - Nervous system disorder [Fatal]
  - Thrombocytopenia [Unknown]
  - Neutropenia [Unknown]
  - Neuropathy peripheral [Unknown]
  - Diffuse large B-cell lymphoma [Fatal]
  - Cerebral haemorrhage [Fatal]
  - Haemorrhage [Fatal]
  - Constipation [Unknown]
